FAERS Safety Report 19827724 (Version 2)
Quarter: 2021Q3

REPORT INFORMATION
  Report Type: Report from Study
  Country: CA (occurrence: CA)
  Receive Date: 20210914
  Receipt Date: 20210929
  Transmission Date: 20211014
  Serious: No
  Sender: FDA-Public Use
  Company Number: CA-TAKEDA-2021TUS029379

PATIENT
  Age: 21 Year
  Sex: Female

DRUGS (4)
  1. ICATIBANT [Suspect]
     Active Substance: ICATIBANT ACETATE
     Indication: HEREDITARY ANGIOEDEMA
     Dosage: 30MG/3ML, PRN
     Route: 065
     Dates: start: 20210429
  2. ICATIBANT [Suspect]
     Active Substance: ICATIBANT ACETATE
     Dosage: 30MG/3ML, PRN
     Route: 065
     Dates: start: 20210429
  3. ICATIBANT [Suspect]
     Active Substance: ICATIBANT ACETATE
     Dosage: 30MG/3ML, PRN
     Route: 065
     Dates: start: 20210429
  4. ICATIBANT [Suspect]
     Active Substance: ICATIBANT ACETATE
     Indication: HEREDITARY ANGIOEDEMA
     Dosage: 30MG/3ML, PRN
     Route: 065
     Dates: start: 20210429

REACTIONS (2)
  - Product administration error [Unknown]
  - Fear of injection [Recovered/Resolved]

NARRATIVE: CASE EVENT DATE: 20210724
